FAERS Safety Report 9124807 (Version 1)
Quarter: 2013Q1

REPORT INFORMATION
  Report Type: Spontaneous
  Country: FR (occurrence: FR)
  Receive Date: 20130227
  Receipt Date: 20130227
  Transmission Date: 20140127
  Serious: Yes (Hospitalization)
  Sender: FDA-Public Use
  Company Number: FR-B.I. PHARMACEUTICALS,INC./RIDGEFIELD-2013-FF-00556FF

PATIENT
  Age: 67 Year
  Sex: Female

DRUGS (4)
  1. PRADAXA [Suspect]
     Dosage: 220 MG
     Dates: start: 20121106, end: 20130104
  2. BACTRIM [Suspect]
     Dates: end: 201211
  3. HEMIGOXINE [Suspect]
     Dates: start: 20121106, end: 20130104
  4. CORDARONE [Suspect]
     Dosage: 200 MG
     Dates: start: 20121106, end: 20130104

REACTIONS (1)
  - Drug reaction with eosinophilia and systemic symptoms [Recovered/Resolved]
